FAERS Safety Report 5536005-7 (Version None)
Quarter: 2007Q4

REPORT INFORMATION
  Report Type: 
  Country: None (occurrence: None)
  Receive Date: 20071120
  Receipt Date: 20070918
  Transmission Date: 20080405
  Serious: No
  Sender: FDA-Public Use
  Company Number: WAES 0709USA02679

PATIENT
  Age: 68 Year
  Sex: Male

DRUGS (12)
  1. JANUVIA [Suspect]
     Indication: TYPE 2 DIABETES MELLITUS
     Dosage: PO
     Route: 048
     Dates: start: 20070913
  2. SYNTHROID [Concomitant]
  3. ZOCOR [Concomitant]
  4. [THERAPY UNSPECIFIED] [Concomitant]
  5. ATENOLOL [Concomitant]
  6. DOXAZOSIN MESYLATE [Concomitant]
  7. GABAPENTIN [Concomitant]
  8. GEMFIBROZIL [Concomitant]
  9. GLIPIZIDE [Concomitant]
  10. ISOSORBIDE DINITRATE [Concomitant]
  11. LISINOPRIL [Concomitant]
  12. METFORMIN HCL [Concomitant]

REACTIONS (1)
  - BLOOD GLUCOSE INCREASED [None]
